FAERS Safety Report 21178450 (Version 2)
Quarter: 2022Q3

REPORT INFORMATION
  Report Type: Spontaneous
  Country: US (occurrence: US)
  Receive Date: 20220805
  Receipt Date: 20220816
  Transmission Date: 20221026
  Serious: Yes (Other)
  Sender: FDA-Public Use
  Company Number: US-PFIZER INC-PV202200036834

PATIENT
  Age: 57 Year
  Sex: Female
  Weight: 61.224 kg

DRUGS (7)
  1. SERTRALINE HYDROCHLORIDE [Suspect]
     Active Substance: SERTRALINE HYDROCHLORIDE
     Indication: Obsessive-compulsive disorder
     Dosage: 200 MG, 1X/DAY
     Dates: start: 202010
  2. SERTRALINE HYDROCHLORIDE [Suspect]
     Active Substance: SERTRALINE HYDROCHLORIDE
     Indication: Anxiety
  3. SERTRALINE HYDROCHLORIDE [Suspect]
     Active Substance: SERTRALINE HYDROCHLORIDE
     Indication: Depression
  4. ZIPRASIDONE HYDROCHLORIDE [Suspect]
     Active Substance: ZIPRASIDONE HYDROCHLORIDE
     Indication: Obsessive-compulsive disorder
     Dosage: 100 MG, 1X/DAY (AM 40MG, NOON 20 MG, PM 40 MG)
  5. ZIPRASIDONE HYDROCHLORIDE [Suspect]
     Active Substance: ZIPRASIDONE HYDROCHLORIDE
     Indication: Anxiety
     Dosage: 60 MG, 1X/DAY (NOW TAPERING AND TAKING 20MG /MORNING AND 40 MG/ EVENING)
     Dates: start: 202207
  6. ZIPRASIDONE HYDROCHLORIDE [Suspect]
     Active Substance: ZIPRASIDONE HYDROCHLORIDE
     Indication: Depression
  7. CLONAZEPAM [Concomitant]
     Active Substance: CLONAZEPAM
     Dosage: 1 MG, 3X/DAY

REACTIONS (7)
  - Withdrawal syndrome [Recovering/Resolving]
  - Tremor [Recovering/Resolving]
  - Muscle twitching [Recovering/Resolving]
  - Feeling abnormal [Recovering/Resolving]
  - Speech disorder [Recovering/Resolving]
  - Memory impairment [Recovering/Resolving]
  - Dysphemia [Recovering/Resolving]
